FAERS Safety Report 9785330 (Version 8)
Quarter: 2015Q2

REPORT INFORMATION
  Report Type: Report from Study
  Country: CN (occurrence: CN)
  Receive Date: 20131227
  Receipt Date: 20150626
  Transmission Date: 20150821
  Serious: Yes (Hospitalization)
  Sender: FDA-Public Use
  Company Number: CN-UCBSA-107344

PATIENT
  Age: 24 Year
  Sex: Male
  Weight: 65 kg

DRUGS (3)
  1. OXCARBAZEPINE. [Concomitant]
     Active Substance: OXCARBAZEPINE
     Indication: EPILEPSY
     Dosage: .3 G, 2X/DAY (BID)
     Route: 048
     Dates: start: 20120810
  2. LACOSAMIDE EP [Suspect]
     Active Substance: LACOSAMIDE
     Indication: EPILEPSY
     Dosage: 200 MG, 2X/DAY (BID)
     Route: 048
     Dates: start: 20131031, end: 20131222
  3. CARBAMAZEPINE. [Concomitant]
     Active Substance: CARBAMAZEPINE
     Indication: EPILEPSY
     Dosage: .2 G, 3X/DAY (TID)
     Route: 048
     Dates: start: 20120810

REACTIONS (4)
  - Drug-induced liver injury [Recovered/Resolved]
  - Bronchitis [Recovered/Resolved]
  - Pneumonia [Recovered/Resolved]
  - Upper gastrointestinal haemorrhage [Recovered/Resolved]

NARRATIVE: CASE EVENT DATE: 20131221
